FAERS Safety Report 19879510 (Version 3)
Quarter: 2021Q4

REPORT INFORMATION
  Report Type: Report from Study
  Country: DE (occurrence: DE)
  Receive Date: 20210924
  Receipt Date: 20211028
  Transmission Date: 20220303
  Serious: Yes (Other)
  Sender: FDA-Public Use
  Company Number: DE-MERCK HEALTHCARE KGAA-9262982

PATIENT
  Age: 58 Year
  Sex: Female

DRUGS (9)
  1. MAVENCLAD [Suspect]
     Active Substance: CLADRIBINE
     Indication: Relapsing-remitting multiple sclerosis
     Route: 048
     Dates: start: 201904
  2. MAVENCLAD [Suspect]
     Active Substance: CLADRIBINE
     Route: 048
     Dates: start: 201905
  3. MAVENCLAD [Suspect]
     Active Substance: CLADRIBINE
     Route: 048
     Dates: start: 202005
  4. MAVENCLAD [Suspect]
     Active Substance: CLADRIBINE
     Route: 048
     Dates: start: 202006
  5. NABIXIMOLS [Concomitant]
     Active Substance: NABIXIMOLS
     Indication: Pain
     Dosage: FOUR TO SIX SPRAYS DURING THE DAY
     Dates: start: 202107
  6. LEVOTHYROXINE [Concomitant]
     Active Substance: LEVOTHYROXINE
     Indication: Hypothyroidism
  7. CARBAMAZEPINE [Concomitant]
     Active Substance: CARBAMAZEPINE
     Indication: Product used for unknown indication
     Dosage: MORNING 37.5 MG AND 50 MG AT NIGHT
  8. AGOMAVAL [Concomitant]
     Indication: Product used for unknown indication
  9. TIZANIDINE [Concomitant]
     Active Substance: TIZANIDINE
     Indication: Pain
     Dates: start: 202012, end: 202107

REACTIONS (10)
  - Impaired healing [Not Recovered/Not Resolved]
  - Wound infection staphylococcal [Recovered/Resolved]
  - Nodule [Unknown]
  - Blister rupture [Unknown]
  - Skin wound [Unknown]
  - Erythema nodosum [Unknown]
  - Salivary gland mucocoele [Unknown]
  - Tooth abscess [Not Recovered/Not Resolved]
  - Fibroma [Unknown]
  - Lymphocyte count decreased [Unknown]

NARRATIVE: CASE EVENT DATE: 20190101
